FAERS Safety Report 19940270 (Version 1)
Quarter: 2021Q4

REPORT INFORMATION
  Report Type: Spontaneous
  Country: TH (occurrence: TH)
  Receive Date: 20211011
  Receipt Date: 20211011
  Transmission Date: 20220303
  Serious: Yes (Death)
  Sender: FDA-Public Use
  Company Number: TH-NOVARTISPH-NVSC2021TH231407

PATIENT
  Age: 68 Year
  Sex: Female

DRUGS (2)
  1. TAFINLAR [Suspect]
     Active Substance: DABRAFENIB MESYLATE
     Indication: Product used for unknown indication
     Dosage: 75 MG, BID (2 TABLETS)
     Route: 065
     Dates: start: 20210318
  2. MEKINIST [Suspect]
     Active Substance: TRAMETINIB DIMETHYL SULFOXIDE
     Indication: Product used for unknown indication
     Dosage: 2 MG, QD (1 TABLET)
     Route: 065

REACTIONS (9)
  - Haemoglobin decreased [Fatal]
  - Dysarthria [Fatal]
  - Aphasia [Fatal]
  - Confusional state [Fatal]
  - Memory impairment [Fatal]
  - Central nervous system lesion [Fatal]
  - Somnolence [Fatal]
  - Brain oedema [Fatal]
  - Metastases to central nervous system [Fatal]
